FAERS Safety Report 16062859 (Version 9)
Quarter: 2020Q3

REPORT INFORMATION
  Report Type: Report from Study
  Country: IT (occurrence: IT)
  Receive Date: 20190312
  Receipt Date: 20200917
  Transmission Date: 20201102
  Serious: Yes (Hospitalization, Other)
  Sender: FDA-Public Use
  Company Number: IT-INCYTE CORPORATION-2018IN011454

PATIENT

DRUGS (8)
  1. HYDROXYUREA. [Concomitant]
     Active Substance: HYDROXYUREA
     Indication: PRODUCT USED FOR UNKNOWN INDICATION
     Dosage: 500 MG (EVERY3 DAYS)
     Route: 065
     Dates: start: 20191112
  2. LAMIVUDINE. [Concomitant]
     Active Substance: LAMIVUDINE
     Indication: PROPHYLAXIS
     Dosage: UNK
     Route: 065
     Dates: start: 20180315
  3. JAKAVI [Suspect]
     Active Substance: RUXOLITINIB
     Indication: POLYCYTHAEMIA VERA
     Dosage: 20 UNK
     Route: 048
     Dates: start: 20180315, end: 20180606
  4. JAKAVI [Suspect]
     Active Substance: RUXOLITINIB
     Dosage: 20 UNK
     Route: 048
     Dates: start: 20180802, end: 20190505
  5. ACETYLSALICYLIC ACID;ASCORBIC ACID;METHYLPREDNISOLONE [Concomitant]
     Indication: POLYCYTHAEMIA VERA
     Dosage: 100 UNK
     Route: 065
     Dates: start: 20071011, end: 20190802
  6. JAKAVI [Suspect]
     Active Substance: RUXOLITINIB
     Dosage: 10 UNK
     Route: 048
     Dates: start: 20180607, end: 20180801
  7. JAKAVI [Suspect]
     Active Substance: RUXOLITINIB
     Dosage: 10 UNK
     Route: 048
     Dates: start: 20190506, end: 20190512
  8. JAKAVI [Suspect]
     Active Substance: RUXOLITINIB
     Dosage: 20 UNK
     Route: 048
     Dates: start: 20190513

REACTIONS (15)
  - Eosinophil count increased [Unknown]
  - Second primary malignancy [Unknown]
  - Campylobacter gastroenteritis [Recovered/Resolved]
  - White blood cell count increased [Unknown]
  - Basophil count increased [Unknown]
  - Pruritus [Recovered/Resolved]
  - Squamous cell carcinoma [Recovered/Resolved]
  - Bowen^s disease [Unknown]
  - Nasopharyngitis [Recovered/Resolved]
  - Platelet count increased [Unknown]
  - Second primary malignancy [Recovered/Resolved]
  - Pruritus [Recovered/Resolved]
  - Squamous cell carcinoma [Unknown]
  - Neutrophil count increased [Unknown]
  - Sciatica [Recovered/Resolved]

NARRATIVE: CASE EVENT DATE: 20180531
